FAERS Safety Report 5188122-1 (Version None)
Quarter: 2006Q4

REPORT INFORMATION
  Report Type: 
  Country: None (occurrence: None)
  Receive Date: 20061218
  Receipt Date: 20061218
  Transmission Date: 20070319
  Serious: Yes (Other)
  Sender: FDA-Public Use
  Company Number: None

PATIENT
  Age: 50 Year
  Sex: Female
  Weight: 63.5036 kg

DRUGS (4)
  1. DOXEPIN HCL [Suspect]
     Indication: INSOMNIA
     Dosage: 25-50 MG AT NIGHT ORAL
     Route: 048
     Dates: start: 20060801
  2. DOXEPIN HCL [Suspect]
     Indication: UNEVALUABLE EVENT
     Dosage: 25-50 MG AT NIGHT ORAL
     Route: 048
     Dates: start: 20060801
  3. SEROQUEL [Suspect]
     Dosage: 200 MG AT NIGHT ORAL
     Route: 048
     Dates: start: 20040101
  4. TEMAZEPAM [Concomitant]

REACTIONS (1)
  - SLEEP WALKING [None]
